FAERS Safety Report 24156190 (Version 1)
Quarter: 2024Q3

REPORT INFORMATION
  Report Type: Spontaneous
  Country: OM (occurrence: OM)
  Receive Date: 20240731
  Receipt Date: 20240731
  Transmission Date: 20241016
  Serious: Yes (Other)
  Sender: RANBAXY
  Company Number: OM-SUN PHARMACEUTICAL INDUSTRIES LTD-2024RR-460100

PATIENT
  Age: 73 Year
  Sex: Female

DRUGS (1)
  1. BACLOFEN [Suspect]
     Active Substance: BACLOFEN
     Indication: Back pain
     Dosage: 10 MILLIGRAM, BID
     Route: 065

REACTIONS (1)
  - Neurotoxicity [Recovering/Resolving]
